FAERS Safety Report 24140626 (Version 1)
Quarter: 2024Q3

REPORT INFORMATION
  Report Type: Other
  Country: US (occurrence: US)
  Receive Date: 20240726
  Receipt Date: 20240726
  Transmission Date: 20241017
  Serious: Yes (Death, Other)
  Sender: APPCO PHARMA
  Company Number: US-Appco Pharma LLC-2159635

PATIENT
  Age: 50 Year
  Sex: Female

DRUGS (2)
  1. BACLOFEN [Suspect]
     Active Substance: BACLOFEN
     Indication: Product used for unknown indication
     Route: 065
  2. PREGABALIN [Suspect]
     Active Substance: PREGABALIN
     Route: 065

REACTIONS (4)
  - Toxicity to various agents [Fatal]
  - Depressed level of consciousness [Fatal]
  - Coma [Fatal]
  - Respiratory depression [Fatal]
